FAERS Safety Report 22066310 (Version 1)
Quarter: 2023Q1

REPORT INFORMATION
  Report Type: Spontaneous
  Country: CA (occurrence: None)
  Receive Date: 20230306
  Receipt Date: 20230306
  Transmission Date: 20230418
  Serious: Yes (Other)
  Sender: FDA-Public Use
  Company Number: None

PATIENT
  Age: 39 Year
  Sex: Female
  Weight: 65.25 kg

DRUGS (8)
  1. ORALAIR [Suspect]
     Active Substance: ANTHOXANTHUM ODORATUM POLLEN\DACTYLIS GLOMERATA POLLEN\LOLIUM PERENNE POLLEN\PHLEUM PRATENSE POLLEN\
     Indication: Seasonal allergy
     Dosage: 1 TABLET  DAILY ORAL
     Route: 048
     Dates: start: 20230215, end: 20230303
  2. MSM Vit c [Concomitant]
  3. MSM Vit e [Concomitant]
  4. MSM Vit b [Concomitant]
  5. COENZYME Q10 [Concomitant]
  6. Selenium NAC Ginseng [Concomitant]
  7. Turmeric [Concomitant]
  8. Evening primrose oil Gemma therapy - alder and blackcurrant [Concomitant]

REACTIONS (7)
  - Chest discomfort [None]
  - Oesophageal oedema [None]
  - Migraine [None]
  - Night sweats [None]
  - Fatigue [None]
  - Poor quality sleep [None]
  - Gastrooesophageal reflux disease [None]

NARRATIVE: CASE EVENT DATE: 20230303
